FAERS Safety Report 12471284 (Version 1)
Quarter: 2016Q2

REPORT INFORMATION
  Report Type: Spontaneous
  Country: US (occurrence: None)
  Receive Date: 20160615
  Receipt Date: 20160615
  Transmission Date: 20160815
  Serious: Yes (Other)
  Sender: FDA-Public Use
  Company Number: None

PATIENT
  Sex: Female

DRUGS (1)
  1. WALGREEN STERILE LUBRICANT DROPS 30 COUNT [Suspect]
     Active Substance: CARBOXYMETHYLCELLULOSE SODIUM
     Indication: DRY EYE
     Dosage: 25 VIALS
     Route: 047
     Dates: start: 20160527, end: 20160528

REACTIONS (5)
  - Product quality issue [None]
  - Superficial injury of eye [None]
  - Corneal infection [None]
  - Eye irritation [None]
  - Eye pain [None]

NARRATIVE: CASE EVENT DATE: 20160529
